FAERS Safety Report 4586739-6 (Version None)
Quarter: 2005Q1

REPORT INFORMATION
  Report Type: 
  Country: None (occurrence: None)
  Receive Date: 20050217
  Receipt Date: 20050217
  Transmission Date: 20050727
  Serious: Yes (Other)
  Sender: FDA-Public Use
  Company Number: None

PATIENT
  Sex: Female

DRUGS (2)
  1. CORRECTOL [Suspect]
     Indication: CONSTIPATION
     Dosage: 9-10 TABS QD ORAL
     Route: 048
     Dates: start: 19860101, end: 20050131
  2. EX-LAX [Suspect]
     Indication: CONSTIPATION
     Dosage: 6-7 PILLS Q D ORAL
     Route: 048

REACTIONS (6)
  - CONSTIPATION [None]
  - DIARRHOEA [None]
  - DRUG DEPENDENCE [None]
  - HAEMORRHOIDS [None]
  - LAXATIVE ABUSE [None]
  - RECTAL HAEMORRHAGE [None]
